FAERS Safety Report 5356462-9 (Version None)
Quarter: 2007Q3

REPORT INFORMATION
  Report Type: 
  Country: None (occurrence: None)
  Receive Date: 20070530
  Receipt Date: 20070110
  Transmission Date: 20080115
  Serious: Yes (Hospitalization, Other)
  Sender: FDA-Public Use
  Company Number: US200609003634

PATIENT
  Age: 45 Year
  Sex: Female
  Weight: 49.4 kg

DRUGS (1)
  1. ZYPREXA [Suspect]
     Indication: ANXIETY

REACTIONS (3)
  - DIABETES MELLITUS [None]
  - PANCREATITIS [None]
  - PANCREATITIS CHRONIC [None]
